FAERS Safety Report 6607186-9 (Version None)
Quarter: 2010Q1

REPORT INFORMATION
  Report Type: 
  Country: None (occurrence: None)
  Receive Date: 20100227
  Receipt Date: 20100215
  Transmission Date: 20100710
  Serious: Yes (Death)
  Sender: FDA-Public Use
  Company Number: US-JNJFOC-20100208605

PATIENT
  Sex: Female
  Weight: 60.33 kg

DRUGS (4)
  1. FENTANYL-100 [Suspect]
     Indication: SUICIDE ATTEMPT
     Route: 065
  2. AMITRIPTYLINE HCL [Suspect]
     Indication: SUICIDE ATTEMPT
     Route: 065
  3. TRAZODONE HCL [Concomitant]
     Route: 065
  4. NORTRIPTYLINE HCL [Concomitant]
     Route: 065

REACTIONS (2)
  - COMPLETED SUICIDE [None]
  - DRUG TOXICITY [None]
